FAERS Safety Report 6914522-2 (Version None)
Quarter: 2010Q3

REPORT INFORMATION
  Report Type: 
  Country: None (occurrence: None)
  Receive Date: 20100809
  Receipt Date: 20100728
  Transmission Date: 20110219
  Serious: Yes (Other)
  Sender: FDA-Public Use
  Company Number: VE-PFIZER INC-2010095331

PATIENT
  Age: 86 Year
  Sex: Female

DRUGS (6)
  1. TAFIL [Suspect]
     Indication: HYPOTHYROIDISM
     Dosage: 0.5 MG, 1X/DAY
     Route: 048
     Dates: start: 20000101, end: 20100725
  2. DIOVAN [Concomitant]
     Indication: HYPERTENSION
     Dosage: 160 MG, 1X/DAY
     Route: 048
     Dates: start: 19980101
  3. THYRAX [Concomitant]
     Indication: HYPOTHYROIDISM
     Dosage: 0.1 MG, 1X/DAY
     Route: 048
     Dates: start: 19970101
  4. LANSOPRAZOLE [Concomitant]
     Indication: ACID BASE BALANCE
     Dosage: 30 MG, 1X/DAY
     Route: 048
     Dates: start: 20040101
  5. SPIRIVA [Concomitant]
     Indication: RESPIRATORY DISTRESS
     Dosage: UNK
  6. SERETIDE [Concomitant]
     Indication: RESPIRATORY DISTRESS
     Dosage: 0.50 MG, UNK
     Route: 048
     Dates: start: 20060101

REACTIONS (6)
  - ASTHENIA [None]
  - BLOOD PRESSURE INCREASED [None]
  - DISCOMFORT [None]
  - DYSPEPSIA [None]
  - INSOMNIA [None]
  - TACHYCARDIA [None]
